FAERS Safety Report 15468043 (Version 2)
Quarter: 2018Q4

REPORT INFORMATION
  Report Type: Report from Study
  Country: None (occurrence: DO)
  Receive Date: 20181005
  Receipt Date: 20181109
  Transmission Date: 20190204
  Serious: Yes (Other)
  Sender: FDA-Public Use
  Company Number: DO-ABBVIE-18K-279-2510048-00

PATIENT
  Age: 31 Year
  Sex: Male

DRUGS (3)
  1. HUMIRA [Suspect]
     Active Substance: ADALIMUMAB
     Route: 058
     Dates: start: 201810
  2. HUMIRA [Suspect]
     Active Substance: ADALIMUMAB
     Indication: CROHN^S DISEASE
     Route: 058
     Dates: start: 20170607, end: 2018
  3. AZORAN [Concomitant]
     Indication: CROHN^S DISEASE
     Route: 048
     Dates: start: 20170703, end: 20181003

REACTIONS (6)
  - Polyp [Recovered/Resolved]
  - Crohn^s disease [Recovered/Resolved]
  - Anogenital dysplasia [Recovered/Resolved]
  - Colitis [Recovered/Resolved]
  - Eructation [Recovered/Resolved]
  - Chronic gastritis [Recovered/Resolved]

NARRATIVE: CASE EVENT DATE: 20180803
